FAERS Safety Report 25154355 (Version 2)
Quarter: 2025Q2

REPORT INFORMATION
  Report Type: Report from Study
  Country: KR (occurrence: KR)
  Receive Date: 20250403
  Receipt Date: 20250613
  Transmission Date: 20250717
  Serious: Yes (Hospitalization)
  Sender: TAKEDA
  Company Number: KR-TAKEDA-2025TUS032302

PATIENT
  Age: 78 Year
  Sex: Female
  Weight: 54.3 kg

DRUGS (22)
  1. VEDOLIZUMAB [Suspect]
     Active Substance: VEDOLIZUMAB
     Indication: Colitis ulcerative
     Dosage: 108 MILLIGRAM, QD
     Dates: start: 20231025
  2. VEDOLIZUMAB [Suspect]
     Active Substance: VEDOLIZUMAB
     Indication: Crohn^s disease
  3. Mago [Concomitant]
     Indication: Gastritis
     Dosage: 250 MILLIGRAM, TID
     Dates: start: 20220907
  4. Mirzentac [Concomitant]
     Indication: Crohn^s disease
     Dosage: 15 MILLIGRAM, QD
     Dates: start: 20230110
  5. Mirzentac [Concomitant]
     Indication: Colitis ulcerative
  6. ATIVAN [Concomitant]
     Active Substance: LORAZEPAM
     Indication: Crohn^s disease
     Dosage: 0.5 MILLIGRAM, BID
     Dates: start: 20230627
  7. ATIVAN [Concomitant]
     Active Substance: LORAZEPAM
     Indication: Colitis ulcerative
  8. MIRABEGRON [Concomitant]
     Active Substance: MIRABEGRON
     Indication: Crohn^s disease
     Dosage: 50 MILLIGRAM, QD
     Dates: start: 20201230
  9. MIRABEGRON [Concomitant]
     Active Substance: MIRABEGRON
     Indication: Colitis ulcerative
  10. HARNAL [Concomitant]
     Active Substance: TAMSULOSIN HYDROCHLORIDE
     Indication: Crohn^s disease
     Dosage: 0.2 MILLIGRAM, QD
     Dates: start: 20210224
  11. HARNAL [Concomitant]
     Active Substance: TAMSULOSIN HYDROCHLORIDE
     Indication: Colitis ulcerative
  12. DIABEX [Concomitant]
     Active Substance: METFORMIN HYDROCHLORIDE
     Indication: Crohn^s disease
     Dosage: 250 MILLIGRAM, QD
     Dates: start: 20240224
  13. DIABEX [Concomitant]
     Active Substance: METFORMIN HYDROCHLORIDE
     Indication: Colitis ulcerative
  14. PROLIA [Concomitant]
     Active Substance: DENOSUMAB
     Indication: Crohn^s disease
     Dosage: 60 MILLIGRAM, Q6MONTHS
     Dates: start: 20221109
  15. PROLIA [Concomitant]
     Active Substance: DENOSUMAB
     Indication: Colitis ulcerative
  16. Amosartan xq [Concomitant]
     Indication: Crohn^s disease
     Dosage: UNK UNK, QD
     Dates: start: 20210518
  17. Amosartan xq [Concomitant]
     Indication: Colitis ulcerative
  18. Dicamax [Concomitant]
     Indication: Vitamin D deficiency
     Dosage: UNK UNK, QD
     Dates: start: 20230823
  19. Lanobin [Concomitant]
     Indication: Vitamin B12 deficiency
     Dates: start: 20240124, end: 20240414
  20. TEGOPRAZAN [Concomitant]
     Active Substance: TEGOPRAZAN
     Indication: Gastritis
     Dosage: UNK UNK, QD
     Dates: start: 20240725
  21. Stillen [Concomitant]
     Dosage: UNK UNK, QD
     Dates: start: 20240725
  22. ASACOL [Concomitant]
     Active Substance: MESALAMINE
     Dosage: 160 MILLIGRAM, BID
     Dates: start: 20220126

REACTIONS (1)
  - Gastric adenoma [Recovered/Resolved]

NARRATIVE: CASE EVENT DATE: 20240626
